FAERS Safety Report 20290827 (Version 1)
Quarter: 2022Q1

REPORT INFORMATION
  Report Type: Spontaneous
  Country: US (occurrence: None)
  Receive Date: 20220103
  Receipt Date: 20220103
  Transmission Date: 20220423
  Serious: Yes (Other)
  Sender: FDA-Public Use
  Company Number: None

PATIENT
  Age: 32 Year
  Sex: Male
  Weight: 117 kg

DRUGS (2)
  1. ENOXAPARIN [Suspect]
     Active Substance: ENOXAPARIN
     Indication: Deep vein thrombosis
     Dosage: FREQUENCY : TWICE A DAY;?
     Route: 058
     Dates: start: 20211220, end: 20220102
  2. BARICITINIB [Suspect]
     Active Substance: BARICITINIB

REACTIONS (2)
  - Pelvic haematoma [None]
  - Abdominal wall haematoma [None]

NARRATIVE: CASE EVENT DATE: 20220102
